FAERS Safety Report 4417738-2 (Version None)
Quarter: 2004Q3

REPORT INFORMATION
  Report Type: 
  Country: None (occurrence: None)
  Receive Date: 20040803
  Receipt Date: 20040723
  Transmission Date: 20050211
  Serious: Yes (Other)
  Sender: FDA-Public Use
  Company Number: 2004050005

PATIENT
  Age: 30 Year
  Sex: Female

DRUGS (3)
  1. ZELDOX (CAPSULES) (ZIPRASIDONE) [Suspect]
     Indication: COGNITIVE DISORDER
     Dosage: 160 MG, ORAL
     Route: 048
  2. ZELDOX (CAPSULES) (ZIPRASIDONE) [Suspect]
     Indication: WEIGHT INCREASED
     Dosage: 160 MG, ORAL
     Route: 048
  3. FLUPHENAZINE HYDROCHLORIDE (FLUPHENAZINE HYDROCHLORIDE) [Concomitant]

REACTIONS (2)
  - ARRHYTHMIA [None]
  - ELECTROCARDIOGRAM QT PROLONGED [None]
